FAERS Safety Report 12607858 (Version 1)
Quarter: 2016Q3

REPORT INFORMATION
  Report Type: Spontaneous
  Country: US (occurrence: US)
  Receive Date: 20160729
  Receipt Date: 20160729
  Transmission Date: 20161109
  Serious: Yes (Other)
  Sender: FDA-Public Use
  Company Number: US-BAYER-2016-142135

PATIENT
  Age: 50 Year
  Sex: Female
  Weight: 63.95 kg

DRUGS (3)
  1. LINZESS [Concomitant]
     Active Substance: LINACLOTIDE
  2. MILK OF MAGNESIA ORIGINAL [Suspect]
     Active Substance: MAGNESIUM HYDROXIDE
     Indication: CONSTIPATION
     Dosage: 2-4 TABLESPOONS ONCE OR TWICE A, PRN
     Route: 048
     Dates: start: 2016
  3. MILK OF MAGNESIA [Suspect]
     Active Substance: MAGNESIUM HYDROXIDE
     Indication: CONSTIPATION
     Dosage: UNK
     Route: 048
     Dates: start: 2016, end: 2016

REACTIONS (9)
  - Nausea [Recovered/Resolved]
  - Malaise [None]
  - Malaise [Recovered/Resolved]
  - Drug effect delayed [None]
  - Drug dependence [None]
  - Product use issue [None]
  - Eructation [Recovered/Resolved]
  - Vomiting [Recovered/Resolved]
  - Headache [Recovered/Resolved]

NARRATIVE: CASE EVENT DATE: 2016
